FAERS Safety Report 19203815 (Version 1)
Quarter: 2021Q2

REPORT INFORMATION
  Report Type: Spontaneous
  Country: GB (occurrence: GB)
  Receive Date: 20210501
  Receipt Date: 20210501
  Transmission Date: 20210717
  Serious: Yes (Hospitalization)
  Sender: FDA-Public Use
  Company Number: GB-ASTRAZENECA-2021A354751

PATIENT
  Age: 48 Year
  Sex: Female
  Weight: 85.7 kg

DRUGS (1)
  1. OLAPARIB. [Suspect]
     Active Substance: OLAPARIB
     Indication: OVARIAN CANCER METASTATIC
     Dosage: MAINTENANCE
     Route: 048
     Dates: start: 20210212, end: 20210416

REACTIONS (2)
  - Papilloedema [Not Recovered/Not Resolved]
  - Visual brightness [Not Recovered/Not Resolved]

NARRATIVE: CASE EVENT DATE: 20210409
